FAERS Safety Report 16740567 (Version 1)
Quarter: 2019Q3

REPORT INFORMATION
  Report Type: Spontaneous
  Country: SE (occurrence: SE)
  Receive Date: 20190826
  Receipt Date: 20190826
  Transmission Date: 20191005
  Serious: Yes (Hospitalization)
  Sender: FDA-Public Use
  Company Number: SE-B.I. PHARMACEUTICALS,INC./RIDGEFIELD-2019-12-002690

PATIENT
  Age: 80 Year
  Sex: Male

DRUGS (12)
  1. LOSARTAN. [Concomitant]
     Active Substance: LOSARTAN
     Indication: PRODUCT USED FOR UNKNOWN INDICATION
     Dosage: PHARMACEUTICAL FORM: DEPOTTABLETT
     Route: 065
     Dates: start: 20171120
  2. VENLAFAXINE [Concomitant]
     Active Substance: VENLAFAXINE HYDROCHLORIDE
     Indication: PRODUCT USED FOR UNKNOWN INDICATION
     Route: 065
     Dates: start: 20171120
  3. TIMOSAN [Concomitant]
     Active Substance: TIMOLOL MALEATE
     Indication: PRODUCT USED FOR UNKNOWN INDICATION
     Dosage: TIMOSAN 1 MG/ML DEPOT?GONDROPPAR, L?SNING I ENDOSBEH?LLARE
     Route: 065
     Dates: start: 20171120
  4. JANUVIA [Concomitant]
     Active Substance: SITAGLIPTIN PHOSPHATE
     Indication: PRODUCT USED FOR UNKNOWN INDICATION
     Route: 065
  5. TROMBYL [Concomitant]
     Active Substance: ASPIRIN
     Indication: PRODUCT USED FOR UNKNOWN INDICATION
     Route: 065
     Dates: start: 20171120
  6. ALFUZOSIN [Concomitant]
     Active Substance: ALFUZOSIN
     Indication: PRODUCT USED FOR UNKNOWN INDICATION
     Route: 065
     Dates: start: 20190513
  7. MOMETASONE [Concomitant]
     Active Substance: MOMETASONE
     Indication: PRODUCT USED FOR UNKNOWN INDICATION
     Dosage: 2 DOSER VID BEHOV DAGLIGEN I VARDERA NASBORRE, FORM OF ADMIN:NASSPRAY, SUSPENSION
     Route: 065
     Dates: start: 20190118
  8. FLUCLOXACILLIN [Suspect]
     Active Substance: FLUCLOXACILLIN
     Dosage: FORM OF ADMIN:TABLETTER
     Route: 048
     Dates: start: 201906, end: 201906
  9. CAVERJECTDUAL [Concomitant]
     Indication: PRODUCT USED FOR UNKNOWN INDICATION
     Dosage: EN DOS VID BEHOV, DOSAGE FORM: PULVER OCH VATSKA TILL INJEKTIONSVATSKA, L?SNING
     Route: 065
     Dates: start: 20190313
  10. JARDIANCE [Suspect]
     Active Substance: EMPAGLIFLOZIN
     Indication: TYPE 2 DIABETES MELLITUS
     Dosage: FORM OF ADMIN:FILMDRAGERAD TABLETT
     Route: 048
     Dates: start: 20190225, end: 20190725
  11. OMEPRAZOLE. [Concomitant]
     Active Substance: OMEPRAZOLE
     Indication: PRODUCT USED FOR UNKNOWN INDICATION
     Dosage: FORM OF ADMIN.:KAPSLAR
     Route: 065
     Dates: start: 20190313
  12. FLUCLOXACILLIN [Suspect]
     Active Substance: FLUCLOXACILLIN
     Indication: BURSITIS
     Dosage: FORM OF ADMIN:TABLETTER
     Route: 048
     Dates: start: 201905, end: 201905

REACTIONS (1)
  - Acute hepatic failure [Not Recovered/Not Resolved]

NARRATIVE: CASE EVENT DATE: 20190712
